FAERS Safety Report 5366195-0 (Version None)
Quarter: 2007Q2

REPORT INFORMATION
  Report Type: 
  Country: None (occurrence: None)
  Receive Date: 20070620
  Receipt Date: 20070608
  Transmission Date: 20071010
  Serious: Yes (Other)
  Sender: FDA-Public Use
  Company Number: 2007-159401-NL

PATIENT
  Age: 43 Year
  Sex: Female
  Weight: 58.5 kg

DRUGS (2)
  1. NUVARING [Suspect]
     Dosage: VAGINAL, 3 WEEKS IN, 1 WEEK OUT
     Route: 067
  2. TRAZODONE HCL [Concomitant]

REACTIONS (6)
  - ABDOMINAL PAIN [None]
  - ABDOMINAL REBOUND TENDERNESS [None]
  - VAGINAL ERYTHEMA [None]
  - VAGINAL INFLAMMATION [None]
  - VAGINAL OEDEMA [None]
  - VULVOVAGINAL MYCOTIC INFECTION [None]
